FAERS Safety Report 24667156 (Version 1)
Quarter: 2024Q4

REPORT INFORMATION
  Report Type: Spontaneous
  Country: FR (occurrence: FR)
  Receive Date: 20241126
  Receipt Date: 20241126
  Transmission Date: 20250115
  Serious: Yes (Hospitalization)
  Sender: DAIICHI
  Company Number: FR-DSJP-DS-2024-109625-FR

PATIENT
  Age: 75 Year
  Sex: Female

DRUGS (1)
  1. ENHERTU [Suspect]
     Active Substance: FAM-TRASTUZUMAB DERUXTECAN-NXKI
     Indication: HER2 low breast cancer
     Dosage: UNK
     Route: 065
     Dates: start: 20230213

REACTIONS (7)
  - Clostridium difficile colitis [Unknown]
  - Overweight [Unknown]
  - Sinusitis [Unknown]
  - Dyspnoea [Unknown]
  - Interstitial lung disease [Recovering/Resolving]
  - Asthenia [Unknown]
  - Intentional product use issue [Unknown]
